FAERS Safety Report 4532056-X (Version None)
Quarter: 2004Q4

REPORT INFORMATION
  Report Type: 
  Country: None (occurrence: None)
  Receive Date: 20041220
  Receipt Date: 20041209
  Transmission Date: 20050328
  Serious: Yes (Hospitalization)
  Sender: FDA-Public Use
  Company Number: 387882

PATIENT
  Age: 68 Year
  Sex: Male

DRUGS (1)
  1. KREDEX [Suspect]
     Indication: DRUG USE FOR UNKNOWN INDICATION
     Dosage: 50MG PER DAY
     Route: 048

REACTIONS (5)
  - FATIGUE [None]
  - SYNCOPE [None]
  - TACHYARRHYTHMIA [None]
  - VERTIGO [None]
  - VOMITING [None]
